FAERS Safety Report 7345724-1 (Version None)
Quarter: 2011Q1

REPORT INFORMATION
  Report Type: 
  Country: None (occurrence: None)
  Receive Date: 20110310
  Receipt Date: 20110228
  Transmission Date: 20110831
  Serious: Yes (Hospitalization, Other)
  Sender: FDA-Public Use
  Company Number: US-MYLANLABS-2011S1003907

PATIENT
  Age: 62 Year
  Sex: Female

DRUGS (2)
  1. TEMAZEPAM [Suspect]
     Indication: INSOMNIA
  2. CLONAZEPAM [Suspect]
     Indication: ANXIETY
     Dates: start: 20080201

REACTIONS (1)
  - CHEST DISCOMFORT [None]
